FAERS Safety Report 23758271 (Version 1)
Quarter: 2024Q2

REPORT INFORMATION
  Report Type: Spontaneous
  Country: US (occurrence: US)
  Receive Date: 20240418
  Receipt Date: 20240418
  Transmission Date: 20240716
  Serious: Yes (Death)
  Sender: FDA-Public Use
  Company Number: US-IGSA-BIG0028509

PATIENT
  Sex: Female

DRUGS (1)
  1. GAMUNEX-C [Suspect]
     Active Substance: HUMAN IMMUNOGLOBULIN G
     Indication: Hypogammaglobulinaemia
     Dosage: 20 GRAM, Q.M.T.
     Route: 042
     Dates: start: 202211

REACTIONS (1)
  - Death [Fatal]
